FAERS Safety Report 8369790-X (Version None)
Quarter: 2012Q2

REPORT INFORMATION
  Report Type: 
  Country: None (occurrence: None)
  Receive Date: 20120518
  Receipt Date: 20120514
  Transmission Date: 20120825
  Serious: Yes (Hospitalization)
  Sender: FDA-Public Use
  Company Number: PHEH2012US008464

PATIENT
  Sex: Male
  Weight: 96 kg

DRUGS (8)
  1. ATENOLOL [Concomitant]
     Dosage: 100 MG,
  2. EFFIENT [Concomitant]
     Dosage: 10 MG,
  3. LANTUS [Concomitant]
     Dosage: UNK UKN, UNK
  4. ENALAPRIL MALEATE [Concomitant]
     Dosage: 10 MG,
  5. NORVASC [Concomitant]
  6. TASIGNA [Suspect]
     Indication: CHRONIC MYELOID LEUKAEMIA
     Dosage: 300 MG, BID
     Route: 048
     Dates: start: 20120330, end: 20120403
  7. GLUCOVANCE [Concomitant]
     Dosage: UNK UKN, UNK
  8. ZOCOR [Concomitant]
     Dosage: 20 MG, UNK

REACTIONS (4)
  - PANCREATITIS [None]
  - AMYLASE INCREASED [None]
  - ABDOMINAL PAIN [None]
  - LIPASE INCREASED [None]
